FAERS Safety Report 5053611-7 (Version None)
Quarter: 2006Q3

REPORT INFORMATION
  Report Type: 
  Country: None (occurrence: None)
  Receive Date: 20060712
  Receipt Date: 20060629
  Transmission Date: 20061208
  Serious: Yes (Hospitalization, Other)
  Sender: FDA-Public Use
  Company Number: DEWYE886829JUN06

PATIENT
  Age: 21 Year
  Sex: Male

DRUGS (3)
  1. VENLAFAXINE HCL [Suspect]
     Dosage: OVERDOSE AMOUNT UNKNOWN, ORAL
     Route: 048
     Dates: start: 20060529, end: 20060529
  2. HEROIN (DIAMORPHINE, , 0_ [Suspect]
     Dosage: OVERDOSE AMOUNT UNKNOWN
     Dates: start: 20060529, end: 20060529
  3. ROHYPNOL (FLUNITRAZEPAM, , 0) [Suspect]
     Dosage: OVERDOSE UNKNOWN, ORAL
     Route: 048
     Dates: start: 20060529, end: 20060529

REACTIONS (6)
  - BRADYPNOEA [None]
  - DRUG ABUSER [None]
  - MIOSIS [None]
  - MULTIPLE DRUG OVERDOSE INTENTIONAL [None]
  - SOPOR [None]
  - TACHYCARDIA [None]
